FAERS Safety Report 7998760-6 (Version None)
Quarter: 2011Q4

REPORT INFORMATION
  Report Type: 
  Country: None (occurrence: None)
  Receive Date: 20111221
  Receipt Date: 20111206
  Transmission Date: 20120403
  Serious: Yes (Disabling, Other)
  Sender: FDA-Public Use
  Company Number: JP-WATSON-2011-12046

PATIENT
  Age: 77 Year
  Sex: Male

DRUGS (4)
  1. KRESTIN [Concomitant]
     Indication: GASTRIC CANCER
     Dosage: UNK
  2. RAPAFLO [Suspect]
     Indication: DYSURIA
     Dosage: 4 MG, DAILY
     Route: 048
     Dates: start: 20080212, end: 20101025
  3. TAGAMET [Concomitant]
     Indication: PROPHYLAXIS AGAINST GASTROINTESTINAL ULCER
     Dosage: UNK
     Route: 048
  4. UFT [Suspect]
     Indication: GASTRIC CANCER
     Dosage: UNK
     Route: 048

REACTIONS (1)
  - RENAL FAILURE CHRONIC [None]
